FAERS Safety Report 21895769 (Version 1)
Quarter: 2023Q1

REPORT INFORMATION
  Report Type: Spontaneous
  Country: US (occurrence: US)
  Receive Date: 20230123
  Receipt Date: 20230123
  Transmission Date: 20230418
  Serious: Yes (Other)
  Sender: FDA-Public Use
  Company Number: US-BAXTER-2023BAX010884

PATIENT
  Age: 34 Year
  Sex: Female
  Weight: 75 kg

DRUGS (3)
  1. BUPIVACAINE [Suspect]
     Active Substance: BUPIVACAINE
     Indication: Epidural anaesthesia
     Dosage: TOTAL OF 20 ML OF 0.5%
     Route: 008
  2. BUPIVACAINE [Suspect]
     Active Substance: BUPIVACAINE
     Dosage: A TOTAL OF 20 ML OF 0.25% WAS INJECTED IN 5-ML INCREMENTS, INTRAFASCIAL ROUTE
     Route: 050
  3. FENTANYL [Suspect]
     Active Substance: FENTANYL
     Indication: Epidural anaesthesia
     Dosage: 100 MCG
     Route: 008

REACTIONS (8)
  - Horner^s syndrome [Recovered/Resolved]
  - Miosis [Recovered/Resolved]
  - Vision blurred [Recovered/Resolved]
  - Eyelid ptosis [Recovered/Resolved]
  - Brachial plexopathy [Recovered/Resolved]
  - Muscular weakness [Recovered/Resolved]
  - Sensory disturbance [Recovered/Resolved]
  - Exposure during pregnancy [Unknown]
